FAERS Safety Report 5319491-7 (Version None)
Quarter: 2007Q2

REPORT INFORMATION
  Report Type: 
  Country: None (occurrence: None)
  Receive Date: 20070508
  Receipt Date: 20070425
  Transmission Date: 20071010
  Serious: Yes (Other)
  Sender: FDA-Public Use
  Company Number: BR-ELI_LILLY_AND_COMPANY-BR200701002447

PATIENT
  Age: 81 Year
  Sex: Female

DRUGS (16)
  1. FORTEO [Suspect]
     Indication: OSTEOPOROSIS
     Dosage: 20 UG, DAILY (1/D)
     Route: 058
     Dates: start: 20051001
  2. CALCIUM CHLORIDE [Concomitant]
     Indication: OSTEOPOROSIS
     Dosage: UNK, UNKNOWN
     Route: 048
  3. SYNTHROID [Concomitant]
     Dosage: 112 UG, EACH MORNING
     Route: 065
  4. RIOPAN PLUS [Concomitant]
     Dosage: UNK, EACH MORNING
     Route: 065
  5. PANTOPRAZOLE [Concomitant]
     Dosage: 40 MG, EACH MORNING
     Route: 065
  6. LOSARTAN POTASSIUM AND HYDROCHLOROTHIAZIDE [Concomitant]
     Dosage: UNK MG, EACH MORNING
     Route: 065
  7. LANSOPRAZOLE [Concomitant]
     Dosage: 30 MG, EACH MORNING
     Route: 065
  8. SUPRADYN [Concomitant]
     Dosage: UNK, DAILY (1/D)
     Route: 065
  9. VITERGAN MASTER [Concomitant]
     Dosage: UNK, DAILY (1/D)
     Route: 065
  10. GELATIN [Concomitant]
     Dosage: 600 MG, 3/D
     Route: 065
  11. LORAX [Concomitant]
     Dosage: 2 MG, DAILY (1/D)
     Route: 065
  12. RIVOTRIL [Concomitant]
     Dosage: 2 MG, DAILY (1/D)
     Route: 065
  13. DORMONID [Concomitant]
     Dosage: 15 MG, DAILY (1/D)
     Route: 065
  14. DORFLEX [Concomitant]
     Dosage: UNK, UNKNOWN
     Route: 065
  15. LUFTAL [Concomitant]
     Dosage: UNK, UNKNOWN
     Route: 065
  16. BUSCOPAN [Concomitant]
     Dosage: UNK, UNKNOWN
     Route: 065

REACTIONS (3)
  - DRUG INEFFECTIVE [None]
  - FEMUR FRACTURE [None]
  - OSTEOPOROSIS [None]
